FAERS Safety Report 12665178 (Version 5)
Quarter: 2016Q3

REPORT INFORMATION
  Report Type: Report from Study
  Country: BR (occurrence: BR)
  Receive Date: 20160818
  Receipt Date: 20160928
  Transmission Date: 20161109
  Serious: Yes (Other)
  Sender: FDA-Public Use
  Company Number: PHHY2016BR113033

PATIENT
  Sex: Female
  Weight: 72 kg

DRUGS (3)
  1. ATENOLOL. [Concomitant]
     Active Substance: ATENOLOL
     Indication: ANTICOAGULANT THERAPY
  2. ATENOLOL. [Concomitant]
     Active Substance: ATENOLOL
     Indication: BLOOD PRESSURE ABNORMAL
     Dosage: 50 MG, QD (OVER 16 YEARS)
     Route: 048
  3. DIOVAN HCT [Suspect]
     Active Substance: HYDROCHLOROTHIAZIDE\VALSARTAN
     Indication: HYPERTENSION
     Dosage: 1 DF (HYDROCHLOROTHIAZIDE 12.5 MG, VALSARTAN 160 MG), QD
     Route: 048

REACTIONS (11)
  - Dermatitis allergic [Unknown]
  - Scratch [Unknown]
  - Product colour issue [Unknown]
  - Incorrect dose administered [Unknown]
  - Cataract [Recovering/Resolving]
  - Mass [Unknown]
  - Fear [Unknown]
  - Varicose vein [Not Recovered/Not Resolved]
  - Pruritus [Unknown]
  - Product size issue [Unknown]
  - Product label issue [Unknown]
